FAERS Safety Report 9261377 (Version 1)
Quarter: 2013Q2

REPORT INFORMATION
  Report Type: Spontaneous
  Country: US (occurrence: US)
  Receive Date: 20130429
  Receipt Date: 20130429
  Transmission Date: 20140414
  Serious: Yes (Hospitalization)
  Sender: FDA-Public Use
  Company Number: US-PFIZER INC-2013128955

PATIENT
  Age: 40 Year
  Sex: Male
  Weight: 83 kg

DRUGS (2)
  1. BOSULIF [Suspect]
     Indication: CHRONIC MYELOID LEUKAEMIA
     Dosage: 500 MG, 1X/DAY
     Dates: start: 20130227, end: 2013
  2. BOSULIF [Suspect]
     Dosage: 500 MG, 1X/DAY
     Dates: start: 2013, end: 20130412

REACTIONS (2)
  - Headache [Not Recovered/Not Resolved]
  - Ill-defined disorder [Unknown]
